FAERS Safety Report 6638178-1 (Version None)
Quarter: 2010Q1

REPORT INFORMATION
  Report Type: 
  Country: None (occurrence: None)
  Receive Date: 20100315
  Receipt Date: 20100315
  Transmission Date: 20100710
  Serious: No
  Sender: FDA-Public Use
  Company Number: None

PATIENT
  Age: 8 Year
  Sex: Male
  Weight: 26.9 kg

DRUGS (3)
  1. TOPAMAX [Suspect]
     Dosage: 150MG BID
  2. CARBATROL [Suspect]
     Dosage: 300MG BID
  3. DELSYM [Suspect]
     Dosage: PRN FOR COLD SX

REACTIONS (4)
  - CONDITION AGGRAVATED [None]
  - CONVULSION [None]
  - NASOPHARYNGITIS [None]
  - TOOTH EXTRACTION [None]
